FAERS Safety Report 7338060-0 (Version None)
Quarter: 2011Q1

REPORT INFORMATION
  Report Type: 
  Country: None (occurrence: None)
  Receive Date: 20110308
  Receipt Date: 20110223
  Transmission Date: 20110831
  Serious: Yes (Other)
  Sender: FDA-Public Use
  Company Number: PHHY2011CA16062

PATIENT
  Sex: Female

DRUGS (1)
  1. ACLASTA [Suspect]
     Indication: OSTEOPOROSIS
     Dosage: UNK
     Dates: start: 20100415

REACTIONS (4)
  - INFUSION SITE EXTRAVASATION [None]
  - INFUSION SITE DISCOLOURATION [None]
  - INFUSION SITE SWELLING [None]
  - VEIN DISORDER [None]
